FAERS Safety Report 5590565-9 (Version None)
Quarter: 2008Q1

REPORT INFORMATION
  Report Type: 
  Country: None (occurrence: None)
  Receive Date: 20080110
  Receipt Date: 20080104
  Transmission Date: 20080703
  Serious: Yes (Other)
  Sender: FDA-Public Use
  Company Number: 021819

PATIENT
  Age: 52 Year
  Sex: Female
  Weight: 60.3 kg

DRUGS (5)
  1. CLARAVIS [Suspect]
     Indication: ACNE CYSTIC
     Dosage: 20 MG, QD, ORAL
     Route: 048
     Dates: start: 20071113, end: 20071208
  2. AMBIEN [Concomitant]
  3. ERYTHROMYCIN [Concomitant]
  4. LEXAPRO [Concomitant]
  5. ZETIA [Concomitant]

REACTIONS (5)
  - ALANINE AMINOTRANSFERASE INCREASED [None]
  - ASPARTATE AMINOTRANSFERASE INCREASED [None]
  - BLOOD LACTATE DEHYDROGENASE INCREASED [None]
  - DISCOMFORT [None]
  - NAUSEA [None]
